FAERS Safety Report 4731971-1 (Version None)
Quarter: 2005Q3

REPORT INFORMATION
  Report Type: 
  Country: None (occurrence: None)
  Receive Date: 20050725
  Receipt Date: 20041020
  Transmission Date: 20060218
  Serious: Yes (Disabling)
  Sender: FDA-Public Use
  Company Number: WAES 0410USA03169

PATIENT
  Age: 76 Year
  Sex: Female

DRUGS (5)
  1. VIOXX [Suspect]
     Indication: ARTHRITIS
     Dosage: PO
     Route: 048
     Dates: start: 20030101, end: 20031101
  2. ADVAIR DISKUS 100/50 [Concomitant]
  3. DILTIAZEM CD [Concomitant]
  4. FLONASE [Concomitant]
  5. HYDRODIURIL [Concomitant]

REACTIONS (1)
  - VOMITING [None]
